FAERS Safety Report 17496864 (Version 1)
Quarter: 2020Q1

REPORT INFORMATION
  Report Type: Spontaneous
  Country: US (occurrence: US)
  Receive Date: 20200304
  Receipt Date: 20200304
  Transmission Date: 20200409
  Serious: No
  Sender: FDA-Public Use
  Company Number: US-BAYER-2020-037277

PATIENT
  Age: 81 Year
  Sex: Female
  Weight: 69 kg

DRUGS (1)
  1. MIRALAX [Suspect]
     Active Substance: POLYETHYLENE GLYCOL 3350
     Indication: GASTROINTESTINAL DISORDER
     Dosage: 1.5 DF, QD
     Route: 048
     Dates: start: 201912

REACTIONS (2)
  - Incorrect product administration duration [Unknown]
  - Extra dose administered [None]

NARRATIVE: CASE EVENT DATE: 201912
